FAERS Safety Report 10218662 (Version 1)
Quarter: 2014Q1

REPORT INFORMATION
  Report Type: Spontaneous
  Country: US (occurrence: None)
  Receive Date: 20140306
  Receipt Date: 20140306
  Transmission Date: 20141002
  Serious: Yes (Other)
  Sender: FDA-Public Use
  Company Number: 163-21880-13054466

PATIENT
  Age: 70 Year
  Sex: Female

DRUGS (6)
  1. REVLIMID (LENALIDOMIDE) (15 MILLIGRAM, CAPSULES) [Suspect]
     Indication: PLASMA CELL MYELOMA
     Dosage: 15 MG, 21 IN 28 D, PO
     Route: 048
     Dates: start: 20130405
  2. VELCADE (BORTEZOMIB) (UNKNOWN) [Suspect]
     Indication: PLASMA CELL MYELOMA
     Dosage: 4 IN 21 D
     Dates: start: 20130405
  3. COUMADIN (WARFARIN SODIUM) [Concomitant]
  4. GLUCOTROL XL (GLIPIZIDE) [Concomitant]
  5. PROCRIT (ERYTHROPOIETIN) [Concomitant]
  6. ZOCOR (SIMVASTATIN) [Concomitant]

REACTIONS (2)
  - Platelet count decreased [None]
  - Epistaxis [None]
